FAERS Safety Report 4667233-0 (Version None)
Quarter: 2005Q2

REPORT INFORMATION
  Report Type: 
  Country: None (occurrence: None)
  Receive Date: 20050520
  Receipt Date: 20050125
  Transmission Date: 20051028
  Serious: Yes (Hospitalization, Other)
  Sender: FDA-Public Use
  Company Number: US-BRISTOL-MYERS SQUIBB COMPANY-12839510

PATIENT
  Age: 79 Year
  Sex: Male
  Weight: 96 kg

DRUGS (2)
  1. SINEMET [Suspect]
     Indication: APRAXIA
     Route: 048
     Dates: start: 20040219
  2. CARBIDOPA AND LEVODOPA [Concomitant]

REACTIONS (2)
  - NAUSEA [None]
  - VOMITING [None]
